FAERS Safety Report 13188947 (Version 1)
Quarter: 2017Q1

REPORT INFORMATION
  Report Type: Spontaneous
  Country: DE (occurrence: DE)
  Receive Date: 20170206
  Receipt Date: 20170206
  Transmission Date: 20170428
  Serious: Yes (Congenital Anomaly, Other)
  Sender: FDA-Public Use
  Company Number: DE-DRREDDYS-GER/GER/17/0086793

PATIENT
  Age: 1 Day
  Sex: Male
  Weight: 3.22 kg

DRUGS (3)
  1. ATOSIL [Suspect]
     Active Substance: PROMETHAZINE HYDROCHLORIDE
     Indication: POST-TRAUMATIC STRESS DISORDER
     Route: 064
     Dates: start: 20151202, end: 20160705
  2. VENLAFAXINE RETARD [Suspect]
     Active Substance: VENLAFAXINE HYDROCHLORIDE
     Indication: POST-TRAUMATIC STRESS DISORDER
     Route: 064
     Dates: start: 20151202, end: 20160614
  3. FOLIC ACID. [Concomitant]
     Active Substance: FOLIC ACID
     Indication: PROPHYLAXIS OF NEURAL TUBE DEFECT
     Route: 064
     Dates: start: 20160209, end: 20160919

REACTIONS (8)
  - Congenital diaphragmatic hernia [Recovered/Resolved with Sequelae]
  - Hypertension [Recovered/Resolved]
  - Foetal exposure during pregnancy [Recovered/Resolved]
  - Cardiac failure [Recovered/Resolved]
  - Patent ductus arteriosus [Recovering/Resolving]
  - Ventricular septal defect [Unknown]
  - Atrial septal defect [Unknown]
  - Pleural effusion [Recovered/Resolved]

NARRATIVE: CASE EVENT DATE: 20160920
